FAERS Safety Report 8608457-7 (Version None)
Quarter: 2012Q3

REPORT INFORMATION
  Report Type: 
  Country: None (occurrence: None)
  Receive Date: 20120821
  Receipt Date: 20120814
  Transmission Date: 20120928
  Serious: Yes (Life-Threatening)
  Sender: FDA-Public Use
  Company Number: FR-ROCHE-1101652

PATIENT
  Age: 66 Year
  Sex: Male

DRUGS (6)
  1. ROCEPHIN [Suspect]
     Indication: PRODUCT USED FOR UNKNOWN INDICATION
     Route: 065
     Dates: start: 20120702
  2. AMIKACIN [Suspect]
     Indication: PRODUCT USED FOR UNKNOWN INDICATION
     Route: 065
     Dates: start: 20120702
  3. VANCOMYCIN [Concomitant]
     Dates: start: 20120601
  4. CLAMOXYL (FRANCE) [Concomitant]
  5. TAZOBACTAM [Concomitant]
  6. GENTAMICIN [Concomitant]
     Dates: start: 20120601

REACTIONS (2)
  - ANAPHYLACTIC SHOCK [None]
  - CARDIO-RESPIRATORY ARREST [None]
